FAERS Safety Report 7095185-5 (Version None)
Quarter: 2010Q4

REPORT INFORMATION
  Report Type: 
  Country: None (occurrence: None)
  Receive Date: 20101103
  Receipt Date: 20101029
  Transmission Date: 20110411
  Serious: Yes (Other)
  Sender: FDA-Public Use
  Company Number: 1000017109

PATIENT
  Age: 35 Year
  Sex: Female

DRUGS (3)
  1. BYSTOLIC [Suspect]
     Indication: TACHYCARDIA
     Dosage: 5 MG (5 MG, 1 IN 1 D), ORAL
     Route: 048
     Dates: start: 20101015, end: 20101028
  2. PROTONIX [Concomitant]
  3. M.V.I. [Concomitant]

REACTIONS (2)
  - CONVULSION [None]
  - FATIGUE [None]
